FAERS Safety Report 6163781-5 (Version None)
Quarter: 2009Q2

REPORT INFORMATION
  Report Type: 
  Country: None (occurrence: None)
  Receive Date: 20090420
  Receipt Date: 20090420
  Transmission Date: 20091009
  Serious: Yes (Other)
  Sender: FDA-Public Use
  Company Number: None

PATIENT
  Age: 47 Year
  Sex: Female
  Weight: 68.0396 kg

DRUGS (1)
  1. LEVAQUIN [Suspect]
     Indication: SINUSITIS BACTERIAL
     Dosage: 1 TABLET 24 HOURS PO
     Route: 048
     Dates: start: 20090416, end: 20090416

REACTIONS (14)
  - AGITATION [None]
  - ANOREXIA [None]
  - ASTHENIA [None]
  - CONFUSIONAL STATE [None]
  - CRYING [None]
  - HEADACHE [None]
  - INSOMNIA [None]
  - MIDDLE INSOMNIA [None]
  - NIGHTMARE [None]
  - PALPITATIONS [None]
  - PARANOIA [None]
  - TREMOR [None]
  - VISION BLURRED [None]
  - VISUAL IMPAIRMENT [None]
